FAERS Safety Report 10035012 (Version 1)
Quarter: 2014Q1

REPORT INFORMATION
  Report Type: Spontaneous
  Country: US (occurrence: None)
  Receive Date: 20140321
  Receipt Date: 20140321
  Transmission Date: 20141002
  Serious: Yes (Other)
  Sender: FDA-Public Use
  Company Number: PI-10199

PATIENT
  Age: 56 Year
  Sex: Female

DRUGS (3)
  1. CHLORAPREP (2% CHG/70% IPA) WITH FD+C YELLO#6 [Suspect]
     Indication: PREOPERATIVE CARE
     Route: 061
     Dates: start: 20140312
  2. CHLORAPREP (2% CHG/70% IPA) WITH FD + C YELLOW# 6 [Suspect]
     Indication: PREOPERATIVE CARE
     Route: 061
     Dates: start: 20140321
  3. GENERAL ANESTHESIA [Concomitant]

REACTIONS (6)
  - Implant site pain [None]
  - Rash [None]
  - Tachycardia [None]
  - Hypertension [None]
  - Wheezing [None]
  - Anaphylactic reaction [None]
